FAERS Safety Report 5090041-6 (Version None)
Quarter: 2006Q3

REPORT INFORMATION
  Report Type: 
  Country: None (occurrence: None)
  Receive Date: 20060731
  Receipt Date: 20060428
  Transmission Date: 20061208
  Serious: Yes (Hospitalization)
  Sender: FDA-Public Use
  Company Number: 200612583BWH

PATIENT
  Age: 74 Year
  Sex: Male

DRUGS (6)
  1. AVELOX [Suspect]
     Indication: COUGH
     Dosage: 400 MG, TOTAL DAILY, ORAL
     Route: 048
     Dates: start: 20050725
  2. TOPROL-XL [Suspect]
     Indication: DRUG USE FOR UNKNOWN INDICATION
  3. PROPRANOLOL [Concomitant]
  4. IRBESARTAN [Concomitant]
  5. HYDROCHLOROTHIAZDE TAB [Concomitant]
  6. ALPRAZOLAM [Concomitant]

REACTIONS (3)
  - BLOOD PRESSURE IMMEASURABLE [None]
  - CIRCULATORY COLLAPSE [None]
  - HYPERSENSITIVITY [None]
